FAERS Safety Report 8592340-X (Version None)
Quarter: 2012Q3

REPORT INFORMATION
  Report Type: 
  Country: None (occurrence: None)
  Receive Date: 20120814
  Receipt Date: 20120807
  Transmission Date: 20120928
  Serious: Yes (Hospitalization)
  Sender: FDA-Public Use
  Company Number: FR-PFIZER INC-2009199801

PATIENT
  Age: 52 Year
  Sex: Male

DRUGS (6)
  1. SUTENT [Suspect]
     Indication: RENAL CANCER METASTATIC
     Dosage: 50 MG, DAILY, CYCLIC (4 WEEKS OUT OF 6)
  2. SPASFON [Concomitant]
     Dosage: UNK
  3. PRIMPERAN TAB [Concomitant]
     Dosage: UNK
  4. ACETAMINOPHEN [Concomitant]
     Dosage: UNK
  5. OMEPRAZOLE [Concomitant]
     Dosage: UNK
  6. ZANTAC [Concomitant]
     Dosage: UNK

REACTIONS (1)
  - OESOPHAGITIS ULCERATIVE [None]
